FAERS Safety Report 12100084 (Version 3)
Quarter: 2016Q3

REPORT INFORMATION
  Report Type: Spontaneous
  Country: CA (occurrence: CA)
  Receive Date: 20160222
  Receipt Date: 20160926
  Transmission Date: 20161109
  Serious: Yes (Hospitalization, Other)
  Sender: FDA-Public Use
  Company Number: CA-PFIZER INC-2016101225

PATIENT
  Age: 3 Year
  Sex: Male
  Weight: 15.87 kg

DRUGS (2)
  1. CHILDRENS ADVIL [Suspect]
     Active Substance: IBUPROFEN
     Indication: NASOPHARYNGITIS
  2. CHILDRENS ADVIL [Suspect]
     Active Substance: IBUPROFEN
     Indication: PYREXIA
     Dosage: 7 ML, SINGLE
     Route: 048
     Dates: start: 20160121, end: 20160121

REACTIONS (6)
  - Eye swelling [Recovered/Resolved]
  - Product use issue [Unknown]
  - Swelling face [Recovered/Resolved]
  - Product quality issue [Recovered/Resolved]
  - Poor quality drug administered [Unknown]
  - Respiratory tract oedema [Recovered/Resolved]

NARRATIVE: CASE EVENT DATE: 20160121
